FAERS Safety Report 9443079 (Version 2)
Quarter: 2013Q3

REPORT INFORMATION
  Report Type: Spontaneous
  Country: IT (occurrence: IT)
  Receive Date: 20130806
  Receipt Date: 20130927
  Transmission Date: 20140515
  Serious: Yes (Hospitalization)
  Sender: FDA-Public Use
  Company Number: IT-ELI_LILLY_AND_COMPANY-IT201307009247

PATIENT
  Age: 47 Year
  Sex: Female

DRUGS (4)
  1. CYMBALTA [Suspect]
     Indication: PERSONALITY DISORDER
     Dosage: 1 DF, QD
     Route: 048
     Dates: start: 20130509, end: 20130610
  2. FLURAZEPAM [Suspect]
     Indication: INTENTIONAL OVERDOSE
     Dosage: 180 MG, UNKNOWN
     Route: 048
     Dates: start: 20130610, end: 20130610
  3. SEROQUEL [Suspect]
     Indication: INTENTIONAL OVERDOSE
     Dosage: UNK, QD
     Route: 048
     Dates: start: 20130610, end: 20130610
  4. XENAZINA [Suspect]
     Dosage: 1 DF, QD
     Route: 048
     Dates: start: 20130509, end: 20130610

REACTIONS (11)
  - Self-injurious ideation [Recovered/Resolved]
  - Drug abuse [Recovered/Resolved]
  - Balance disorder [Recovered/Resolved]
  - Bradykinesia [Recovered/Resolved]
  - Sopor [Recovered/Resolved]
  - Urinary tract disorder [Recovered/Resolved]
  - Hypotension [Recovered/Resolved]
  - Bradyphrenia [Recovered/Resolved]
  - Dysarthria [Recovered/Resolved]
  - Off label use [Recovered/Resolved]
  - Intentional overdose [Recovered/Resolved]
